FAERS Safety Report 5282060-1 (Version None)
Quarter: 2007Q1

REPORT INFORMATION
  Report Type: 
  Country: None (occurrence: None)
  Receive Date: 20070330
  Receipt Date: 20070320
  Transmission Date: 20070707
  Serious: Yes (Other)
  Sender: FDA-Public Use
  Company Number: US-PFIZER INC-2007010521

PATIENT
  Sex: Male
  Weight: 76.7 kg

DRUGS (9)
  1. TIKOSYN [Suspect]
     Indication: ATRIAL FIBRILLATION
     Route: 048
  2. COREG [Concomitant]
  3. LISINOPRIL [Concomitant]
  4. ZOCOR [Concomitant]
  5. COUMADIN [Concomitant]
  6. TORSEMIDE [Concomitant]
  7. COMBIVENT [Concomitant]
  8. SPIRONOLACTONE [Concomitant]
  9. PREVACID [Concomitant]

REACTIONS (3)
  - DYSPHAGIA [None]
  - GASTROOESOPHAGEAL CANCER [None]
  - VOMITING [None]
